FAERS Safety Report 13114181 (Version 1)
Quarter: 2017Q1

REPORT INFORMATION
  Report Type: Spontaneous
  Country: US (occurrence: US)
  Receive Date: 20170113
  Receipt Date: 20170113
  Transmission Date: 20170428
  Serious: No
  Sender: FDA-Public Use
  Company Number: US-PFIZER INC-2017012225

PATIENT
  Sex: Female

DRUGS (1)
  1. DUAVEE [Suspect]
     Active Substance: BAZEDOXIFENE ACETATE\ESTROGENS, CONJUGATED
     Dosage: 1 DF, DAILY (QD)
     Route: 048
     Dates: start: 201509, end: 201612

REACTIONS (1)
  - Malabsorption [Recovered/Resolved]

NARRATIVE: CASE EVENT DATE: 201509
